FAERS Safety Report 8662133 (Version 2)
Quarter: 2012Q4

REPORT INFORMATION
  Report Type: Report from Study
  Country: NL (occurrence: NL)
  Receive Date: 20120712
  Receipt Date: 20121102
  Transmission Date: 20130627
  Serious: Yes (Hospitalization)
  Sender: FDA-Public Use
  Company Number: NL-ROCHE-1083720

PATIENT
  Age: 66 Year
  Sex: Male

DRUGS (3)
  1. CAPECITABINE [Suspect]
     Indication: GASTRIC CANCER
     Dosage: Date of last treatment 26/Jun/2012.
     Route: 048
     Dates: start: 20120223
  2. CISPLATIN [Suspect]
     Indication: GASTRIC CANCER
     Dosage: Cumulative dose is 118.80mg, Date of last treatment 26/Jun/2012.
     Route: 042
     Dates: start: 20120223
  3. EPIRUBICIN [Suspect]
     Indication: GASTRIC CANCER
     Dosage: Cumulative dose is 394mg, Date of last treatment 26/Jun/2012.
     Route: 042
     Dates: start: 20120223

REACTIONS (1)
  - Gastric dilatation [Recovered/Resolved]
